FAERS Safety Report 7442516-X (Version None)
Quarter: 2011Q2

REPORT INFORMATION
  Report Type: 
  Country: None (occurrence: None)
  Receive Date: 20110425
  Receipt Date: 20110425
  Transmission Date: 20111010
  Serious: Yes (Hospitalization)
  Sender: FDA-Public Use
  Company Number: None

PATIENT
  Age: 43 Year
  Sex: Female

DRUGS (2)
  1. QUETIAPINE [Suspect]
     Indication: OFF LABEL USE
     Dosage: 25 MG DAILY PO
     Route: 048
  2. QUETIAPINE [Suspect]
     Indication: INSOMNIA
     Dosage: 25 MG DAILY PO
     Route: 048

REACTIONS (5)
  - OFF LABEL USE [None]
  - DYSTONIA [None]
  - EXTRAPYRAMIDAL DISORDER [None]
  - TARDIVE DYSKINESIA [None]
  - DYSKINESIA [None]
